FAERS Safety Report 6113630-6 (Version None)
Quarter: 2009Q1

REPORT INFORMATION
  Report Type: 
  Country: None (occurrence: None)
  Receive Date: 20090312
  Receipt Date: 20090225
  Transmission Date: 20090719
  Serious: Yes (Hospitalization)
  Sender: FDA-Public Use
  Company Number: DK-GENENTECH-278640

PATIENT
  Sex: Male

DRUGS (7)
  1. MABTHERA [Suspect]
     Indication: EPSTEIN-BARR VIRUS ASSOCIATED LYMPHOPROLIFERATIVE DISORDER
     Dosage: 248 MG, Q2W
     Route: 042
     Dates: start: 20090113, end: 20090127
  2. MABTHERA [Suspect]
     Dosage: 248 MG, 1/WEEK
     Route: 042
     Dates: start: 20090128
  3. CELLCEPT [Suspect]
     Indication: IMMUNOSUPPRESSION
     Dosage: 500 MG, BID
     Dates: start: 20080101
  4. PROGRAF [Suspect]
     Indication: IMMUNOSUPPRESSION
  5. CYMEVENE [Concomitant]
     Indication: EPSTEIN-BARR VIRAEMIA
     Dosage: UNK
     Dates: start: 20090113, end: 20090206
  6. VALCYTE [Concomitant]
     Indication: EPSTEIN-BARR VIRAEMIA
     Dosage: UNK
     Dates: start: 20090206, end: 20090217
  7. PREDNISOLONE [Concomitant]
     Indication: IMMUNOSUPPRESSION
     Dosage: UNK

REACTIONS (2)
  - EPSTEIN-BARR VIRUS ASSOCIATED LYMPHOPROLIFERATIVE DISORDER [None]
  - NEUTROPENIA [None]
